FAERS Safety Report 24915227 (Version 3)
Quarter: 2025Q1

REPORT INFORMATION
  Report Type: Spontaneous
  Country: AU (occurrence: AU)
  Receive Date: 20250203
  Receipt Date: 20250310
  Transmission Date: 20250409
  Serious: Yes (Other)
  Sender: JOHNSON AND JOHNSON
  Company Number: AU-JNJFOC-20241212394

PATIENT

DRUGS (1)
  1. DARZALEX [Suspect]
     Active Substance: DARATUMUMAB
     Indication: Product used for unknown indication
     Route: 058

REACTIONS (1)
  - Product contamination [Unknown]
